FAERS Safety Report 19573821 (Version 6)
Quarter: 2022Q3

REPORT INFORMATION
  Report Type: Report from Study
  Country: US (occurrence: US)
  Receive Date: 20210718
  Receipt Date: 20220813
  Transmission Date: 20221027
  Serious: No
  Sender: FDA-Public Use
  Company Number: NVSC2021US156788

PATIENT
  Age: 52 Year
  Sex: Female

DRUGS (3)
  1. KESIMPTA [Suspect]
     Active Substance: OFATUMUMAB
     Indication: Multiple sclerosis
     Dosage: UNK (BENEATH THE SKIN USUALLY VIA INJECTION)
     Route: 058
     Dates: start: 20210710
  2. KESIMPTA [Suspect]
     Active Substance: OFATUMUMAB
     Dosage: 0.4 ML, QW (SOLUTION)
     Route: 058
  3. KESIMPTA [Suspect]
     Active Substance: OFATUMUMAB
     Dosage: 20 MG, QMO
     Route: 065

REACTIONS (9)
  - Influenza like illness [Recovered/Resolved]
  - Insomnia [Recovered/Resolved]
  - Incorrect dose administered by device [Unknown]
  - Muscle strain [Not Recovered/Not Resolved]
  - Abdominal rigidity [Recovering/Resolving]
  - Muscle spasms [Recovering/Resolving]
  - Device malfunction [Unknown]
  - Accidental exposure to product [Unknown]
  - Drug dose omission by device [Unknown]

NARRATIVE: CASE EVENT DATE: 20210710
